FAERS Safety Report 6239335-9 (Version None)
Quarter: 2009Q2

REPORT INFORMATION
  Report Type: 
  Country: None (occurrence: None)
  Receive Date: 20090622
  Receipt Date: 20090612
  Transmission Date: 20091009
  Serious: Yes (Death)
  Sender: FDA-Public Use
  Company Number: US-PFIZER INC-2009197178

PATIENT
  Sex: Female
  Weight: 103.86 kg

DRUGS (15)
  1. CAMPTOSAR [Suspect]
     Indication: SMALL CELL LUNG CANCER EXTENSIVE STAGE
     Dosage: 320 MG, (150 MG/M2)
  2. OXALIPLATIN [Suspect]
     Indication: SMALL CELL LUNG CANCER EXTENSIVE STAGE
     Dosage: 180 MG, (85 MG/M2)
  3. ALPRAZOLAM [Concomitant]
     Dosage: 0.5 MG
     Route: 048
  4. DECADRON [Concomitant]
     Dosage: 4 MG, UNK
     Route: 048
  5. DURAGESIC-100 [Concomitant]
     Dosage: 100 UG,
     Route: 061
  6. DURAGESIC-100 [Concomitant]
     Dosage: 25 UG
     Route: 061
  7. LEXAPRO [Concomitant]
     Dosage: 10 MG, UNK
     Route: 048
  8. LOPERAMIDE [Concomitant]
     Indication: DIARRHOEA
     Dosage: 2 MG, UNK
     Route: 048
  9. MOXIFLOXACIN [Concomitant]
     Dosage: 400 MG, UNK
     Route: 048
     Dates: start: 20090218
  10. NEULASTA [Concomitant]
     Dosage: 6 MG, UNK
     Route: 058
  11. OXYCODONE [Concomitant]
     Indication: PAIN
     Dosage: 7.5 MG, UNK
     Route: 048
  12. TESSALON [Concomitant]
     Indication: COUGH
     Dosage: 200 MG, UNK
  13. TRAZODONE [Concomitant]
     Dosage: 50 MG, UNK
     Route: 048
  14. ZOFRAN [Concomitant]
     Indication: PREMEDICATION
     Dosage: 32 MG, UNK
     Route: 042
  15. ZOFRAN [Concomitant]
     Dosage: 8 MG, UNK
     Route: 048

REACTIONS (1)
  - DEATH [None]
